FAERS Safety Report 5252779-7 (Version None)
Quarter: 2007Q1

REPORT INFORMATION
  Report Type: 
  Country: None (occurrence: None)
  Receive Date: 20070301
  Receipt Date: 20061128
  Transmission Date: 20070707
  Serious: Yes (Other)
  Sender: FDA-Public Use
  Company Number: 58414

PATIENT
  Age: 35 Year
  Sex: Male

DRUGS (3)
  1. LAMICTAL [Suspect]
     Dosage: 150MG THREE TIMES PER DAY
     Route: 048
  2. NEURONTIN [Suspect]
     Dosage: 1200MG THREE TIMES PER DAY
  3. KEPPRA [Suspect]
     Dosage: 500MG THREE TIMES PER DAY

REACTIONS (4)
  - GRAND MAL CONVULSION [None]
  - ILL-DEFINED DISORDER [None]
  - INAPPROPRIATE SCHEDULE OF DRUG ADMINISTRATION [None]
  - INCORRECT DOSE ADMINISTERED [None]
